FAERS Safety Report 23437454 (Version 1)
Quarter: 2024Q1

REPORT INFORMATION
  Report Type: Spontaneous
  Country: US (occurrence: None)
  Receive Date: 20240123
  Receipt Date: 20240123
  Transmission Date: 20240410
  Serious: Yes (Hospitalization)
  Sender: FDA-Public Use
  Company Number: None

PATIENT
  Age: 7 Year
  Sex: Male

DRUGS (17)
  1. EPIDIOLEX [Suspect]
     Active Substance: CANNABIDIOL
     Indication: Epilepsy
     Dosage: FREQUENCY : TWICE A DAY;?
     Route: 048
     Dates: start: 20210404
  2. VALPROIC ACID [Concomitant]
     Active Substance: VALPROIC ACID
  3. LEVETIRACETAM [Concomitant]
     Active Substance: LEVETIRACETAM
  4. VANCOMYCIN [Concomitant]
     Active Substance: VANCOMYCIN
  5. CHILDRENS BENADRYL ALLERGY [Concomitant]
     Active Substance: DIPHENHYDRAMINE HYDROCHLORIDE
  6. LACTINEX GRANULES [Concomitant]
  7. BAZA ANTIFUNGAL [Concomitant]
     Active Substance: MICONAZOLE NITRATE
  8. CLONIDINE [Concomitant]
     Active Substance: CLONIDINE
  9. DIAZEPAM [Concomitant]
     Active Substance: DIAZEPAM
  10. AYR SALINE NASAL GEL [Concomitant]
  11. CLOBAZAM [Concomitant]
     Active Substance: CLOBAZAM
  12. CYPROHEPTADINE [Concomitant]
     Active Substance: CYPROHEPTADINE
  13. ERYTHROMYCIN [Concomitant]
     Active Substance: ERYTHROMYCIN
  14. ESOMEPRAZOLE [Concomitant]
     Active Substance: ESOMEPRAZOLE
  15. LEVOTHYROXINE [Concomitant]
     Active Substance: LEVOTHYROXINE\LEVOTHYROXINE SODIUM
  16. MELATONIN [Concomitant]
     Active Substance: MELATONIN
  17. MIRALAX [Concomitant]
     Active Substance: POLYETHYLENE GLYCOL 3350

REACTIONS (1)
  - Post procedural complication [None]

NARRATIVE: CASE EVENT DATE: 20240105
